FAERS Safety Report 20985790 (Version 1)
Quarter: 2022Q2

REPORT INFORMATION
  Report Type: Spontaneous
  Country: DE (occurrence: DE)
  Receive Date: 20220621
  Receipt Date: 20220621
  Transmission Date: 20220721
  Serious: Yes (Hospitalization, Other)
  Sender: FDA-Public Use
  Company Number: DE-TAKEDA-2020TUS052170

PATIENT
  Age: 61 Year
  Sex: Female
  Weight: 59 kg

DRUGS (11)
  1. PANTOPRAZOLE [Suspect]
     Active Substance: PANTOPRAZOLE
     Indication: Product used for unknown indication
     Dosage: UNK
     Route: 065
  2. TEDUGLUTIDE [Suspect]
     Active Substance: TEDUGLUTIDE
     Indication: Short-bowel syndrome
     Dosage: 0.5 MILLILITER, ONCE A DAY
     Route: 058
  3. TEDUGLUTIDE [Suspect]
     Active Substance: TEDUGLUTIDE
     Dosage: 0.2 MILLILITER, ONCE A DAY
     Route: 058
  4. TEDUGLUTIDE [Suspect]
     Active Substance: TEDUGLUTIDE
     Dosage: 0.2 MILLILITER, ONCE A DAY (2 DAY)
     Route: 058
  5. TEDUGLUTIDE [Suspect]
     Active Substance: TEDUGLUTIDE
     Dosage: 0.2 MILLILITER, ONCE A DAY
     Route: 058
  6. TEDUGLUTIDE [Suspect]
     Active Substance: TEDUGLUTIDE
     Dosage: 0.1 MILLILITER, ONCE A DAY
     Route: 058
  7. TEDUGLUTIDE [Suspect]
     Active Substance: TEDUGLUTIDE
     Dosage: 0.24 MILLIGRAM, ONCE A DAY
     Route: 058
  8. TEDUGLUTIDE [Suspect]
     Active Substance: TEDUGLUTIDE
     Dosage: 0.3 MILLILITER, ONCE A DAY
     Route: 058
     Dates: start: 20201113
  9. TEDUGLUTIDE [Suspect]
     Active Substance: TEDUGLUTIDE
     Dosage: 0.2 MILLILITER, ONCE A DAY
     Route: 058
     Dates: start: 20201209
  10. TEDUGLUTIDE [Suspect]
     Active Substance: TEDUGLUTIDE
     Dosage: 0.2 MILLILITER, ONCE A DAY
     Route: 058
     Dates: start: 20210105
  11. INSULIN NOS [Concomitant]
     Active Substance: INSULIN NOS
     Indication: Type 1 diabetes mellitus
     Dosage: UNK
     Route: 065

REACTIONS (18)
  - Device related infection [Recovered/Resolved]
  - Ileus [Recovered/Resolved]
  - Abdominal pain upper [Recovered/Resolved]
  - Device issue [Recovered/Resolved]
  - Faeces hard [Not Recovered/Not Resolved]
  - Liver function test increased [Not Recovered/Not Resolved]
  - Psoriatic arthropathy [Recovering/Resolving]
  - Type 1 diabetes mellitus [Unknown]
  - Abnormal faeces [Recovered/Resolved]
  - Abdominal pain [Recovered/Resolved]
  - Cystitis [Recovered/Resolved]
  - Catheter site infection [Recovered/Resolved]
  - Diarrhoea [Recovered/Resolved]
  - Flatulence [Recovered/Resolved]
  - Hyperglycaemia [Recovered/Resolved]
  - Laryngopharyngitis [Not Recovered/Not Resolved]
  - Tooth infection [Not Recovered/Not Resolved]
  - Vomiting [Recovered/Resolved]

NARRATIVE: CASE EVENT DATE: 20201115
